FAERS Safety Report 4736795-7 (Version None)
Quarter: 2005Q3

REPORT INFORMATION
  Report Type: 
  Country: None (occurrence: None)
  Receive Date: 20050808
  Receipt Date: 20050412
  Transmission Date: 20060218
  Serious: Yes (Hospitalization)
  Sender: FDA-Public Use
  Company Number: US-MERCK-0504USA01833

PATIENT
  Age: 52 Year
  Sex: Female
  Weight: 98 kg

DRUGS (11)
  1. VIOXX [Suspect]
     Indication: PAIN
     Route: 048
     Dates: start: 19990806, end: 20020401
  2. VIOXX [Suspect]
     Route: 048
     Dates: start: 19991211, end: 20040901
  3. VIOXX [Suspect]
     Indication: ARTHRITIS
     Route: 048
     Dates: start: 19990806, end: 20020401
  4. VIOXX [Suspect]
     Route: 048
     Dates: start: 19991211, end: 20040901
  5. ALTACE [Concomitant]
     Route: 065
  6. AMBIEN [Concomitant]
     Route: 065
  7. GLYBURIDE [Concomitant]
     Route: 065
  8. AVANDAMET [Concomitant]
     Route: 065
  9. BEXTRA [Concomitant]
     Route: 065
     Dates: start: 20000101, end: 20020101
  10. CELEBREX [Concomitant]
     Route: 065
     Dates: start: 19980101, end: 20000101
  11. CELEBREX [Concomitant]
     Route: 065
     Dates: start: 20000101, end: 20020101

REACTIONS (30)
  - ANAEMIA [None]
  - ANGINA PECTORIS [None]
  - ANGINA UNSTABLE [None]
  - ANXIETY [None]
  - ARTHRALGIA [None]
  - ARTHROPATHY [None]
  - ATELECTASIS [None]
  - BACK PAIN [None]
  - CARDIAC FAILURE CONGESTIVE [None]
  - CARDIOMEGALY [None]
  - CEREBROVASCULAR ACCIDENT [None]
  - CHEST PAIN [None]
  - CORONARY ARTERY DISEASE [None]
  - CORONARY ARTERY STENOSIS [None]
  - DEPRESSION [None]
  - DIABETES MELLITUS [None]
  - DYSLIPIDAEMIA [None]
  - HEADACHE [None]
  - HOT FLUSH [None]
  - HYPERTENSION [None]
  - INSOMNIA [None]
  - ISCHAEMIA [None]
  - MUSCULOSKELETAL PAIN [None]
  - MYALGIA [None]
  - MYOCARDIAL INFARCTION [None]
  - NAUSEA [None]
  - PAIN IN EXTREMITY [None]
  - PULMONARY FIBROSIS [None]
  - PULMONARY OEDEMA [None]
  - URINARY TRACT INFECTION [None]
